FAERS Safety Report 6100047-3 (Version None)
Quarter: 2009Q1

REPORT INFORMATION
  Report Type: 
  Country: None (occurrence: None)
  Receive Date: 20090303
  Receipt Date: 20090224
  Transmission Date: 20090719
  Serious: Yes (Life-Threatening, Hospitalization)
  Sender: FDA-Public Use
  Company Number: B0561380A

PATIENT
  Age: 16 Year
  Sex: Male

DRUGS (6)
  1. AUGMENTIN '125' [Suspect]
     Indication: DRUG USE FOR UNKNOWN INDICATION
     Dosage: 12G PER DAY
     Route: 048
     Dates: start: 20090201
  2. DOMPERIDONE [Suspect]
     Indication: DRUG USE FOR UNKNOWN INDICATION
     Dosage: 10UNIT PER DAY
     Route: 065
     Dates: start: 20090201
  3. RHINADVIL [Suspect]
     Indication: DRUG USE FOR UNKNOWN INDICATION
     Dosage: 10TAB SINGLE DOSE
     Route: 048
     Dates: start: 20090201
  4. DAFALGAN [Suspect]
     Indication: DRUG USE FOR UNKNOWN INDICATION
     Dosage: 8G PER DAY
     Route: 048
     Dates: start: 20090201
  5. IBUPROFEN [Suspect]
     Indication: DRUG USE FOR UNKNOWN INDICATION
     Dosage: 8UNIT PER DAY
     Route: 048
     Dates: start: 20090201
  6. STRESAM [Suspect]
     Indication: DRUG USE FOR UNKNOWN INDICATION
     Dosage: 20CAP PER DAY
     Route: 048
     Dates: start: 20090201

REACTIONS (2)
  - EPILEPSY [None]
  - INTENTIONAL OVERDOSE [None]
